FAERS Safety Report 16929009 (Version 1)
Quarter: 2019Q4

REPORT INFORMATION
  Report Type: Report from Study
  Country: JP (occurrence: JP)
  Receive Date: 20191017
  Receipt Date: 20191017
  Transmission Date: 20200122
  Serious: Yes (Other)
  Sender: FDA-Public Use
  Company Number: JP-VIIV HEALTHCARE LIMITED-JP2019JPN187001

PATIENT
  Age: 39 Year
  Sex: Male

DRUGS (1)
  1. ABACAVIRSULPHATE+DOLUTEGRAVIR+LAMIVUDINE [Suspect]
     Active Substance: ABACAVIR SULFATE\DOLUTEGRAVIR SODIUM\LAMIVUDINE
     Indication: HIV INFECTION
     Dosage: 1 DF, 1D
     Route: 048
     Dates: start: 20181001

REACTIONS (4)
  - Enterocolitis [Recovering/Resolving]
  - Asthma [Recovering/Resolving]
  - Nasopharyngitis [Recovering/Resolving]
  - Otitis media [Recovering/Resolving]

NARRATIVE: CASE EVENT DATE: 201810
